FAERS Safety Report 6136785-6 (Version None)
Quarter: 2009Q1

REPORT INFORMATION
  Report Type: 
  Country: None (occurrence: None)
  Receive Date: 20090326
  Receipt Date: 20090326
  Transmission Date: 20090719
  Serious: No
  Sender: FDA-Public Use
  Company Number: None

PATIENT
  Age: 66 Year
  Sex: Male
  Weight: 95.4 kg

DRUGS (3)
  1. FERRLECIT [Suspect]
     Indication: IRON DEFICIENCY ANAEMIA
     Dosage: 250 MG X 2 DOSES IV
     Route: 042
     Dates: start: 20090220
  2. 0.9% NA CL 250ML [Suspect]
     Indication: IRON DEFICIENCY ANAEMIA
     Dosage: 250 ML WITH EA. IV IRON
     Route: 042
     Dates: start: 20090220
  3. VACUTAINER SAFETY LOK [Concomitant]

REACTIONS (1)
  - HYPOAESTHESIA [None]
